FAERS Safety Report 6111782-5 (Version None)
Quarter: 2009Q1

REPORT INFORMATION
  Report Type: 
  Country: None (occurrence: None)
  Receive Date: 20090311
  Receipt Date: 20090305
  Transmission Date: 20090719
  Serious: Yes (Disabling, Other)
  Sender: FDA-Public Use
  Company Number: PHHO2008NZ00755

PATIENT
  Sex: Male
  Weight: 60 kg

DRUGS (4)
  1. LDT600 LDT+TAB [Suspect]
     Indication: HEPATITIS B
     Dosage: 600 MG,
     Route: 048
     Dates: start: 20070626, end: 20080101
  2. PEGASYS [Suspect]
     Indication: HEPATITIS B
     Dosage: 180 UG,
     Route: 058
     Dates: start: 20070626, end: 20080102
  3. TEGRETOL [Suspect]
  4. AMITRIPTYLINE [Suspect]

REACTIONS (7)
  - AREFLEXIA [None]
  - CLUMSINESS [None]
  - HYPOAESTHESIA [None]
  - PAIN [None]
  - PARAESTHESIA [None]
  - PERIPHERAL SENSORY NEUROPATHY [None]
  - SOMNOLENCE [None]
